FAERS Safety Report 12481607 (Version 2)
Quarter: 2016Q4

REPORT INFORMATION
  Report Type: Report from Study
  Country: US (occurrence: US)
  Receive Date: 20160620
  Receipt Date: 20161021
  Transmission Date: 20170207
  Serious: Yes (Death)
  Sender: FDA-Public Use
  Company Number: US-PFIZER INC-2016302881

PATIENT

DRUGS (13)
  1. AZACITIDINE. [Suspect]
     Active Substance: AZACITIDINE
     Dosage: 25 MG/M2, DAILY,(LEVEL 2)
     Route: 042
  2. PHENYTOIN. [Concomitant]
     Active Substance: PHENYTOIN
     Indication: SUPPORTIVE CARE
     Dosage: UNK, 300 TO 600 MG DAILY ON DAYS -9 THROUGH -4
  3. BUSULFAN. [Suspect]
     Active Substance: BUSULFAN
     Indication: LYMPHOMA
     Dosage: 32 MG/M2, OVER 3 HOURS (ON DAYS -8 THROUGH -5)
     Route: 042
  4. GLUTAMINE [Concomitant]
     Active Substance: GLUTAMINE
     Indication: DENTAL CARE
     Dosage: UNK
  5. VORINOSTAT [Suspect]
     Active Substance: VORINOSTAT
     Indication: LYMPHOMA
     Dosage: 1000 MG, DAILY, (ON DAYS -11 THROUGH -2 AT A DOSE, WITHIN 1 HOUR BEFORE THE START OF CHEMOTHERAPY
     Route: 048
  6. GEMCITABINE HYDROCHLORIDE. [Suspect]
     Active Substance: GEMCITABINE HYDROCHLORIDE
     Indication: LYMPHOMA
     Dosage: 75 MG/M2, UNK (ON DAYS -8 AND -3 AS A LOADING BOLUS)
     Route: 041
  7. GEMCITABINE HYDROCHLORIDE. [Suspect]
     Active Substance: GEMCITABINE HYDROCHLORIDE
     Dosage: 2700 MG/M2, UNK, (ON DAYS -8 AND -3 AS A LOADING BOLUS)
     Route: 040
  8. DEXAMETHASONE. [Concomitant]
     Active Substance: DEXAMETHASONE
     Indication: SUPPORTIVE CARE
     Dosage: 8 MG, 2X/DAY, (ON DAYS -11 THROUGH -2)
     Route: 042
  9. PALIFERMIN [Concomitant]
     Active Substance: PALIFERMIN
     Indication: DENTAL CARE
     Dosage: UNK
  10. AZACITIDINE. [Suspect]
     Active Substance: AZACITIDINE
     Indication: LYMPHOMA
     Dosage: 15 MG/M2, DAILY, (LEVEL 1DAILY ON DAYS -11 THROUGH -2)
     Route: 042
  11. AZACITIDINE. [Suspect]
     Active Substance: AZACITIDINE
     Dosage: 35 MG/M2, DAILY, (LEVEL 3)
     Route: 042
  12. MELPHALAN [Suspect]
     Active Substance: MELPHALAN
     Indication: LYMPHOMA
     Dosage: 60 MG/M2, DAILY, (OVER 30 MINUTES ON DAYS -3 AND -2)
  13. CALCIUM PHOSPHATE [Concomitant]
     Active Substance: CALCIUM PHOSPHATE
     Indication: DENTAL CARE
     Dosage: UNK

REACTIONS (1)
  - Sepsis [Fatal]
